FAERS Safety Report 6643564-X (Version None)
Quarter: 2010Q1

REPORT INFORMATION
  Report Type: 
  Country: None (occurrence: None)
  Receive Date: 20100320
  Receipt Date: 20100312
  Transmission Date: 20100710
  Serious: Yes (Other)
  Sender: FDA-Public Use
  Company Number: US-B.I. PHARMACEUTICALS,INC./RIDGEFIELD-2010-BP-03102PF

PATIENT
  Sex: Female

DRUGS (6)
  1. SPIRIVA [Suspect]
     Indication: COUGH
     Dosage: 18 MCG
     Route: 055
     Dates: start: 20100201
  2. SYMBICORT [Suspect]
     Indication: COUGH
     Dates: start: 20100201
  3. PRAVACHOL [Concomitant]
  4. AMBIEN [Concomitant]
  5. PROVENTIL [Concomitant]
  6. ADVAIR DISKUS 100/50 [Concomitant]

REACTIONS (1)
  - LUNG NEOPLASM MALIGNANT [None]
